FAERS Safety Report 6996897-1 (Version None)
Quarter: 2010Q3

REPORT INFORMATION
  Report Type: 
  Country: None (occurrence: None)
  Receive Date: 20100918
  Receipt Date: 20090901
  Transmission Date: 20110219
  Serious: No
  Sender: FDA-Public Use
  Company Number: US-WYE-H10198209

PATIENT
  Sex: Female
  Weight: 77.63 kg

DRUGS (1)
  1. PRISTIQ [Suspect]
     Indication: DEPRESSION
     Dosage: 50 MG, FREQUENCY UNKNOWN
     Route: 048
     Dates: start: 20090301, end: 20090301

REACTIONS (2)
  - FATIGUE [None]
  - NONSPECIFIC REACTION [None]
